FAERS Safety Report 5604219-3 (Version None)
Quarter: 2008Q1

REPORT INFORMATION
  Report Type: 
  Country: None (occurrence: None)
  Receive Date: 20080128
  Receipt Date: 20080114
  Transmission Date: 20080703
  Serious: Yes (Hospitalization, Other)
  Sender: FDA-Public Use
  Company Number: US-AMGEN-QUU234466

PATIENT
  Sex: Female
  Weight: 69.5 kg

DRUGS (10)
  1. NEULASTA [Suspect]
     Indication: CHEMOTHERAPY
     Route: 058
     Dates: start: 20070706, end: 20070706
  2. FLUOROURACIL [Concomitant]
     Dates: start: 20070703
  3. ELLENCE [Concomitant]
     Route: 065
     Dates: start: 20070703
  4. CYTOXAN [Concomitant]
     Dates: start: 20070703
  5. KYTRIL [Concomitant]
     Dates: start: 20070703
  6. DECADRON [Concomitant]
     Dates: start: 20070703
  7. ALBUTEROL [Concomitant]
     Route: 048
  8. ADVAIR DISKUS 100/50 [Concomitant]
     Route: 055
  9. LORAZEPAM [Concomitant]
     Dates: start: 20070703
  10. EMEND [Concomitant]
     Dates: start: 20070703

REACTIONS (4)
  - ANAPHYLACTIC SHOCK [None]
  - DYSPNOEA [None]
  - HYPOTENSION [None]
  - URTICARIA [None]
